FAERS Safety Report 21633721 (Version 1)
Quarter: 2022Q4

REPORT INFORMATION
  Report Type: Report from Study
  Country: BE (occurrence: None)
  Receive Date: 20221123
  Receipt Date: 20221123
  Transmission Date: 20230112
  Serious: Yes (Other)
  Sender: FDA-Public Use
  Company Number: 2022A382113

PATIENT
  Sex: Male

DRUGS (3)
  1. IMFINZI [Suspect]
     Active Substance: DURVALUMAB
     Route: 065
     Dates: start: 202203
  2. CARBOPLATIN [Concomitant]
     Active Substance: CARBOPLATIN
     Route: 065
     Dates: start: 202203
  3. ETOPOSIDE [Concomitant]
     Active Substance: ETOPOSIDE
     Route: 065
     Dates: start: 202203

REACTIONS (2)
  - Toxicity to various agents [Unknown]
  - Diarrhoea [Unknown]
